FAERS Safety Report 6768788-2 (Version None)
Quarter: 2010Q2

REPORT INFORMATION
  Report Type: 
  Country: None (occurrence: None)
  Receive Date: 20100611
  Receipt Date: 20091229
  Transmission Date: 20101027
  Serious: Yes (Hospitalization)
  Sender: FDA-Public Use
  Company Number: CRO-2009-PLA-14-RR

PATIENT
  Age: 47 Year
  Sex: Female

DRUGS (1)
  1. COLGATE GREAT REGULAR FLAVOR FLUORIDE TOOTHPASTE [Suspect]
     Dosage: 2X/DAY/ORAL
     Route: 048

REACTIONS (1)
  - TACHYCARDIA [None]
